FAERS Safety Report 8807385 (Version 2)
Quarter: 2012Q4

REPORT INFORMATION
  Report Type: Report from Study
  Country: JP (occurrence: JP)
  Receive Date: 20120925
  Receipt Date: 20121026
  Transmission Date: 20130627
  Serious: Yes (Hospitalization)
  Sender: FDA-Public Use
  Company Number: JP-EISAI INC-E7389-01786-CLI-JP

PATIENT
  Age: 72 Year
  Sex: Female
  Weight: 55 kg

DRUGS (16)
  1. HALAVEN [Suspect]
     Indication: BREAST CANCER RECURRENT
     Route: 041
     Dates: start: 20111111, end: 20111111
  2. AROMASIN [Concomitant]
     Indication: BREAST CANCER RECURRENT
     Route: 065
  3. GASTER [Concomitant]
     Route: 048
  4. GABAPEN [Concomitant]
     Route: 048
  5. METHYCOBAL [Concomitant]
     Route: 048
  6. PYDOXAL [Concomitant]
     Route: 048
  7. LASIX [Concomitant]
     Route: 048
  8. MAGLAX [Concomitant]
     Route: 048
  9. JUZEN-TAIHO-TO [Concomitant]
     Indication: PROPHYLAXIS
     Route: 048
  10. CALONAL [Concomitant]
     Route: 048
  11. NOVAMIN [Concomitant]
     Indication: PROPHYLAXIS
     Route: 048
  12. OXYCONTIN [Concomitant]
     Route: 048
  13. ALLEGRA [Concomitant]
     Route: 048
  14. KYTRIL [Concomitant]
     Indication: PROPHYLAXIS
     Route: 048
  15. ACTOS [Concomitant]
     Route: 048
  16. THYRADIN [Concomitant]
     Route: 048

REACTIONS (4)
  - Sepsis [Recovered/Resolved]
  - Neutropenia [Recovered/Resolved]
  - Thrombocytopenia [Not Recovered/Not Resolved]
  - Leukopenia [Recovered/Resolved]
